FAERS Safety Report 24271526 (Version 2)
Quarter: 2024Q3

REPORT INFORMATION
  Report Type: Report from Study
  Country: US (occurrence: US)
  Receive Date: 20240901
  Receipt Date: 20240911
  Transmission Date: 20241017
  Serious: Yes (Other)
  Sender: ABBVIE
  Company Number: US-ABBVIE-5899400

PATIENT
  Sex: Male
  Weight: 129.27 kg

DRUGS (9)
  1. RINVOQ [Suspect]
     Active Substance: UPADACITINIB
     Indication: Colitis ulcerative
     Route: 048
     Dates: start: 20231017
  2. VITAMIN C [Concomitant]
     Active Substance: ASCORBIC ACID
     Indication: Vitamin supplementation
  3. LOSARTAN [Concomitant]
     Active Substance: LOSARTAN\LOSARTAN POTASSIUM
     Indication: Hypertension
  4. Vitamin d+k [Concomitant]
     Indication: Vitamin supplementation
  5. ZINC [Concomitant]
     Active Substance: ZINC
     Indication: Mineral supplementation
  6. FOLATE SODIUM [Concomitant]
     Active Substance: FOLATE SODIUM
     Indication: Vitamin supplementation
  7. OMEGA 3 [Concomitant]
     Active Substance: CAPSAICIN
     Indication: Supplementation therapy
  8. ALBUTEROL [Concomitant]
     Active Substance: ALBUTEROL
     Indication: Asthma
  9. PANTOPRAZOLE [Concomitant]
     Active Substance: PANTOPRAZOLE
     Indication: Gastrooesophageal reflux disease

REACTIONS (9)
  - Intra-abdominal haematoma [Recovered/Resolved]
  - Arthralgia [Unknown]
  - Colitis ulcerative [Unknown]
  - Hernia [Recovered/Resolved]
  - Spinal disorder [Unknown]
  - Arthritis [Not Recovered/Not Resolved]
  - Fatigue [Recovered/Resolved]
  - Product quality issue [Unknown]
  - Pain in extremity [Not Recovered/Not Resolved]

NARRATIVE: CASE EVENT DATE: 20240101
